FAERS Safety Report 4626361-6 (Version None)
Quarter: 2005Q2

REPORT INFORMATION
  Report Type: 
  Country: None (occurrence: None)
  Receive Date: 20050404
  Receipt Date: 20050321
  Transmission Date: 20051028
  Serious: Yes (Death)
  Sender: FDA-Public Use
  Company Number: PHHO2004NL10977

PATIENT
  Age: 66 Year
  Sex: Female

DRUGS (4)
  1. VALACYCLOVIR HCL [Suspect]
     Indication: LIVER TRANSPLANT
     Route: 048
     Dates: end: 20040707
  2. NEORAL [Suspect]
     Indication: LIVER TRANSPLANT
     Dosage: 700MG PER DAY
     Route: 048
  3. STEROIDS [Suspect]
     Indication: LIVER TRANSPLANT
  4. SIMULECT [Suspect]
     Indication: LIVER TRANSPLANT

REACTIONS (3)
  - GRAFT VERSUS HOST DISEASE [None]
  - GRANULOCYTOPENIA [None]
  - SEPSIS [None]
